FAERS Safety Report 8111010-5 (Version None)
Quarter: 2012Q1

REPORT INFORMATION
  Report Type: 
  Country: None (occurrence: None)
  Receive Date: 20120203
  Receipt Date: 20110209
  Transmission Date: 20120608
  Serious: No
  Sender: FDA-Public Use
  Company Number: US-GLAXOSMITHKLINE-A0912796A

PATIENT

DRUGS (1)
  1. LAMICTAL [Suspect]
     Indication: PRODUCT USED FOR UNKNOWN INDICATION
     Route: 065
     Dates: start: 20110126, end: 20110207

REACTIONS (9)
  - LYMPHADENITIS [None]
  - HEADACHE [None]
  - NERVOUSNESS [None]
  - RASH GENERALISED [None]
  - PYREXIA [None]
  - PAIN [None]
  - HYPERSENSITIVITY [None]
  - ROCKY MOUNTAIN SPOTTED FEVER [None]
  - CHILLS [None]
